FAERS Safety Report 11511953 (Version 2)
Quarter: 2015Q4

REPORT INFORMATION
  Report Type: Report from Study
  Country: HU (occurrence: HU)
  Receive Date: 20150916
  Receipt Date: 20151012
  Transmission Date: 20160304
  Serious: Yes (Hospitalization)
  Sender: FDA-Public Use
  Company Number: HU-ASTRAZENECA-2015SE68482

PATIENT
  Age: 63 Year
  Sex: Male

DRUGS (5)
  1. NEBIVOLOL. [Concomitant]
     Active Substance: NEBIVOLOL
  2. CYTOXAN [Concomitant]
     Active Substance: CYCLOPHOSPHAMIDE
     Dosage: MONTHLY
  3. BETALOC [Concomitant]
     Active Substance: METOPROLOL TARTRATE
     Dosage: DAILY
  4. MEDROL [Concomitant]
     Active Substance: METHYLPREDNISOLONE
  5. SYMBICORT [Suspect]
     Active Substance: BUDESONIDE\FORMOTEROL FUMARATE DIHYDRATE
     Indication: ASTHMA
     Dosage: 2X2 INHALATIONS PER DAY
     Route: 055
     Dates: start: 201503

REACTIONS (5)
  - Pulmonary fibrosis [Unknown]
  - Blood pressure increased [Recovered/Resolved]
  - Heart rate increased [Unknown]
  - Cardiac murmur [Recovered/Resolved]
  - Asthenia [Not Recovered/Not Resolved]

NARRATIVE: CASE EVENT DATE: 20150705
